FAERS Safety Report 13268684 (Version 1)
Quarter: 2017Q1

REPORT INFORMATION
  Report Type: Spontaneous
  Country: DE (occurrence: DE)
  Receive Date: 20170224
  Receipt Date: 20170224
  Transmission Date: 20170428
  Serious: Yes (Other)
  Sender: FDA-Public Use
  Company Number: DE-JNJFOC-20170113862

PATIENT
  Age: 61 Year
  Sex: Male

DRUGS (3)
  1. XARELTO [Suspect]
     Active Substance: RIVAROXABAN
     Indication: EMBOLISM VENOUS
     Route: 048
     Dates: start: 20160108, end: 20160411
  2. ACETYLSALICYLIC ACID [Concomitant]
     Active Substance: ASPIRIN
     Route: 065
  3. PANTOZOL [Concomitant]
     Active Substance: PANTOPRAZOLE SODIUM
     Route: 065

REACTIONS (5)
  - Gastric haemorrhage [Unknown]
  - Diverticulum intestinal [Unknown]
  - Small intestinal haemorrhage [Unknown]
  - Gastric haemorrhage [Unknown]
  - Large intestinal ulcer [Unknown]

NARRATIVE: CASE EVENT DATE: 20160407
